FAERS Safety Report 23148179 (Version 2)
Quarter: 2023Q4

REPORT INFORMATION
  Report Type: Report from Study
  Country: US (occurrence: None)
  Receive Date: 20231106
  Receipt Date: 20231123
  Transmission Date: 20240110
  Serious: Yes (Other)
  Sender: FDA-Public Use
  Company Number: US-ROCHE-3452169

PATIENT
  Age: 46 Year
  Sex: Female
  Weight: 119 kg

DRUGS (4)
  1. BEVACIZUMAB [Suspect]
     Active Substance: BEVACIZUMAB
     Indication: Ovarian epithelial cancer
     Dosage: ON 11/FEB/2009, SHE WAS LAST ADMINISTERED. TOTAL ADMINISTERED DOSE WAS 1950 MG OVER 30-90 MIN ON DAY
     Route: 042
     Dates: start: 20081031
  2. PACLITAXEL [Suspect]
     Active Substance: PACLITAXEL
     Indication: Ovarian epithelial cancer
     Dosage: ON 11/FEB/2009, SHE WAS LAST ADMINISTERED. TOTAL ADMINISTERED DOSE WAS 350 MG, OVER 3 HRS ON DAY 1
     Route: 042
     Dates: start: 20081031
  3. CARBOPLATIN [Suspect]
     Active Substance: CARBOPLATIN
     Indication: Ovarian epithelial cancer
     Dosage: ON 11/FEB/2009, SHE WAS LAST ADMINISTERED. TOTAL ADMINISTERED DOSE WAS 543 MG, AUC 5 IV OVER 30 MIN
     Route: 042
     Dates: start: 20081031
  4. LOVENOX [Concomitant]
     Active Substance: ENOXAPARIN SODIUM
     Route: 065

REACTIONS (1)
  - Embolism [Recovering/Resolving]

NARRATIVE: CASE EVENT DATE: 20090302
